FAERS Safety Report 5417836-0 (Version None)
Quarter: 2007Q3

REPORT INFORMATION
  Report Type: 
  Country: None (occurrence: None)
  Receive Date: 20070817
  Receipt Date: 20070808
  Transmission Date: 20080115
  Serious: Yes (Other)
  Sender: FDA-Public Use
  Company Number: PHHO2007JP13323

PATIENT
  Age: 58 Year
  Sex: Female
  Weight: 71 kg

DRUGS (14)
  1. DIOVAN [Suspect]
     Indication: HYPERTENSION
     Dosage: 160 MG/DAY
     Route: 048
     Dates: start: 20040408
  2. GLYBURIDE [Suspect]
     Indication: DIABETES MELLITUS
     Dosage: 5 MG/DAY
     Route: 048
     Dates: start: 20020128, end: 20061115
  3. GLYBURIDE [Suspect]
     Dosage: 2.5 MG/DAY
     Route: 048
     Dates: start: 20061116
  4. NORVASC [Suspect]
     Indication: HYPERTENSION
     Dosage: 10 MG/DAY
     Route: 048
     Dates: start: 20020128, end: 20040622
  5. NORVASC [Suspect]
     Dosage: 15 MG/DAY
     Route: 048
     Dates: start: 20040623
  6. MEDET [Suspect]
     Indication: DIABETES MELLITUS
     Dosage: 500 MG/DAY
     Route: 048
     Dates: start: 20060112, end: 20070222
  7. MEDET [Suspect]
     Dosage: 750 MG/DAY
     Route: 048
     Dates: start: 20070223
  8. RENIVACE [Concomitant]
  9. ACTOS [Concomitant]
  10. LIPITOR [Concomitant]
  11. LIVALO KOWA [Concomitant]
  12. BUFORMIN [Concomitant]
     Dates: end: 20041028
  13. GLUCOBAY [Concomitant]
     Dates: end: 20060112
  14. SIMAVASTATIN [Concomitant]
     Dates: end: 20050502

REACTIONS (2)
  - MALIGNANT TUMOUR EXCISION [None]
  - RENAL CELL CARCINOMA STAGE UNSPECIFIED [None]
